FAERS Safety Report 8112713-9 (Version None)
Quarter: 2012Q1

REPORT INFORMATION
  Report Type: 
  Country: None (occurrence: None)
  Receive Date: 20120203
  Receipt Date: 20120120
  Transmission Date: 20120608
  Serious: Yes (Hospitalization)
  Sender: FDA-Public Use
  Company Number: NL-AMGEN-NLDSP2012005742

PATIENT
  Sex: Male

DRUGS (4)
  1. ENBREL [Suspect]
     Indication: PSORIASIS
     Dosage: 50 MG, 2X/WEEK
     Dates: start: 20111212
  2. FOLIC ACID [Concomitant]
     Dosage: UNK
  3. METHOTREXATE [Concomitant]
     Dosage: 5 MG, WEEKLY
  4. INDOMETHACIN [Concomitant]
     Dosage: 75 MG, 1X/DAY

REACTIONS (3)
  - FLUID RETENTION [None]
  - ARTHRITIS INFECTIVE [None]
  - WOUND [None]
